FAERS Safety Report 14470502 (Version 11)
Quarter: 2019Q1

REPORT INFORMATION
  Report Type: Report from Study
  Country: CN (occurrence: CN)
  Receive Date: 20180131
  Receipt Date: 20190222
  Transmission Date: 20190417
  Serious: Yes (Death, Life-Threatening, Hospitalization)
  Sender: FDA-Public Use
  Company Number: CN-ROCHE-2062440

PATIENT
  Age: 58 Year
  Sex: Male
  Weight: 58 kg

DRUGS (69)
  1. MEGESTROL ACETATE. [Concomitant]
     Active Substance: MEGESTROL ACETATE
     Route: 048
     Dates: start: 20171205, end: 20171220
  2. POLYENE PHOSPHATIDYLCHOLINE [Concomitant]
     Active Substance: PHOSPHOLIPID
     Route: 042
     Dates: start: 20171205, end: 20171213
  3. METOCLOPRAMIDE. [Concomitant]
     Active Substance: METOCLOPRAMIDE
     Indication: NAUSEA
     Route: 030
     Dates: start: 20171212, end: 20171213
  4. METOCLOPRAMIDE. [Concomitant]
     Active Substance: METOCLOPRAMIDE
     Route: 030
     Dates: start: 20180104, end: 20180105
  5. CREATINE PHOSPHATE SODIUM [Concomitant]
     Active Substance: CREATINE
     Route: 042
     Dates: start: 20180102, end: 20180105
  6. AMBROXOL [Concomitant]
     Active Substance: AMBROXOL
     Indication: PRODUCTIVE COUGH
     Route: 048
     Dates: start: 20171229, end: 20171231
  7. ESOMEPRAZOLE MAGNESIUM. [Concomitant]
     Active Substance: ESOMEPRAZOLE MAGNESIUM
     Route: 048
     Dates: start: 20180105, end: 20180111
  8. ENTERAL NUTRITION [Concomitant]
     Active Substance: DIETARY SUPPLEMENT
     Indication: NUTRITIONAL SUPPLEMENTATION
     Route: 048
     Dates: start: 20180105, end: 20180110
  9. SODIUM CHLORIDE. [Concomitant]
     Active Substance: SODIUM CHLORIDE
     Dosage: REPLENISH BLOOD VOLUME
     Route: 042
     Dates: start: 20180125, end: 20180125
  10. PULMICORT RESPULES [Concomitant]
     Active Substance: BUDESONIDE
     Indication: ASTHMA
  11. COMBIVENT [Concomitant]
     Active Substance: ALBUTEROL SULFATE\IPRATROPIUM BROMIDE
     Indication: MUSCLE SPASMS
     Route: 065
     Dates: start: 20180125, end: 20180125
  12. ALANYL-GLUTAMINE [Concomitant]
     Dosage: COMPENSATORY NUTRITION
     Route: 042
     Dates: start: 20180125, end: 20180125
  13. TROPISETRON HYDROCHLORIDE [Concomitant]
     Active Substance: TROPISETRON HYDROCHLORIDE
     Route: 048
     Dates: start: 20180103, end: 20180105
  14. SODIUM CHLORIDE. [Concomitant]
     Active Substance: SODIUM CHLORIDE
     Dosage: COMPOUND SODIUM CHLORIDE ?SUPPLEMENT BLOOD VOLUME
     Route: 042
     Dates: start: 20180123, end: 20180124
  15. SODIUM CHLORIDE. [Concomitant]
     Active Substance: SODIUM CHLORIDE
     Dosage: REPLENISH BLOOD VOLUME
     Route: 042
     Dates: start: 20180125, end: 20180125
  16. BUDESONIDE. [Concomitant]
     Active Substance: BUDESONIDE
     Indication: ASTHMA
  17. MAGNESIUM SULFATE. [Concomitant]
     Active Substance: MAGNESIUM SULFATE
     Dosage: CLYSTER
     Route: 065
     Dates: start: 20180125, end: 20180125
  18. PULMICORT RESPULES [Concomitant]
     Active Substance: BUDESONIDE
     Indication: MUSCLE SPASMS
     Route: 065
     Dates: start: 20180125, end: 20180125
  19. MEGESTROL ACETATE. [Concomitant]
     Active Substance: MEGESTROL ACETATE
     Route: 048
     Dates: start: 20180105, end: 20180107
  20. POLYENE PHOSPHATIDYLCHOLINE [Concomitant]
     Active Substance: PHOSPHOLIPID
     Dosage: TO PROTECT THE LIVER
     Route: 042
     Dates: start: 20180122, end: 20180125
  21. METOCLOPRAMIDE. [Concomitant]
     Active Substance: METOCLOPRAMIDE
     Route: 030
     Dates: start: 20180125, end: 20180125
  22. SELENIOUS YEAST [Concomitant]
     Route: 048
     Dates: start: 20171214, end: 20171220
  23. ESOMEPRAZOLE SODIUM. [Concomitant]
     Active Substance: ESOMEPRAZOLE SODIUM
     Route: 042
     Dates: start: 20180102, end: 20180105
  24. POTASSIUM CHLORIDE. [Concomitant]
     Active Substance: POTASSIUM CHLORIDE
     Dosage: REPLENISH BLOOD VOLUME
     Route: 042
     Dates: start: 20180125, end: 20180125
  25. GLUCOSE [Concomitant]
     Active Substance: DEXTROSE
     Dosage: REPLENISH BLOOD VOLUME
     Route: 042
     Dates: start: 20180125, end: 20180125
  26. COMBIZYM [Concomitant]
     Route: 048
     Dates: start: 20180122, end: 20180125
  27. SHENQI FUZHENG [Concomitant]
     Dosage: STRENGTHEN BODY RESISTANCE AND ELIMINATING EVIL
     Route: 042
     Dates: start: 20180125, end: 20180125
  28. ATEZOLIZUMAB. [Suspect]
     Active Substance: ATEZOLIZUMAB
     Indication: SMALL CELL LUNG CANCER EXTENSIVE STAGE
     Dosage: DATE OF MOST RECENT DOSE (START TIME: 12:15HR)PRIOR TO AE ONSET 03/JAN/2018?ON DAY 1 OF EACH 21-DAY
     Route: 042
  29. METOCLOPRAMIDE. [Concomitant]
     Active Substance: METOCLOPRAMIDE
     Route: 048
     Dates: start: 20171214, end: 20171216
  30. BUDESONIDE. [Concomitant]
     Active Substance: BUDESONIDE
     Indication: MUSCLE SPASMS
     Route: 065
     Dates: start: 20180125, end: 20180125
  31. CALCIUM GLUCONATE. [Concomitant]
     Active Substance: CALCIUM GLUCONATE
     Indication: ELECTROLYTE IMBALANCE
     Dosage: REPLENISH BLOOD VOLUME
     Route: 042
     Dates: start: 20180125, end: 20180125
  32. POLYENE PHOSPHATIDYLCHOLINE [Concomitant]
     Active Substance: PHOSPHOLIPID
     Route: 042
     Dates: start: 20180102, end: 20180105
  33. TROPISETRON HYDROCHLORIDE [Concomitant]
     Active Substance: TROPISETRON HYDROCHLORIDE
     Dosage: ANTIEMETIC
     Route: 042
     Dates: start: 20171212, end: 20171213
  34. HYDROTALCITE [Concomitant]
     Active Substance: HYDROTALCITE
     Route: 048
     Dates: start: 20180102, end: 20180105
  35. AMBROXOL [Concomitant]
     Active Substance: AMBROXOL
     Indication: PRODUCTIVE COUGH
     Route: 042
     Dates: start: 20180125, end: 20180125
  36. SODIUM CHLORIDE. [Concomitant]
     Active Substance: SODIUM CHLORIDE
     Indication: ELECTROLYTE IMBALANCE
     Route: 048
     Dates: start: 20180122, end: 20180123
  37. SODIUM CHLORIDE. [Concomitant]
     Active Substance: SODIUM CHLORIDE
     Route: 048
     Dates: start: 20180122, end: 20180123
  38. SODIUM CHLORIDE. [Concomitant]
     Active Substance: SODIUM CHLORIDE
     Dosage: REPLENISH BLOOD VOLUME
     Route: 042
     Dates: start: 20180122, end: 20180123
  39. SODIUM CHLORIDE. [Concomitant]
     Active Substance: SODIUM CHLORIDE
     Dosage: REPLENISH BLOOD VOLUME
     Route: 042
     Dates: start: 20180125, end: 20180125
  40. POTASSIUM CHLORIDE. [Concomitant]
     Active Substance: POTASSIUM CHLORIDE
     Indication: ELECTROLYTE IMBALANCE
     Route: 048
     Dates: start: 20180122, end: 20180123
  41. GLUCOSE [Concomitant]
     Active Substance: DEXTROSE
     Indication: ELECTROLYTE IMBALANCE
     Dosage: REPLENISH BLOOD VOLUME
     Route: 042
     Dates: start: 20180122, end: 20180123
  42. GLUCOSE [Concomitant]
     Active Substance: DEXTROSE
     Dosage: REPLENISH BLOOD VOLUME
     Route: 042
     Dates: start: 20180125, end: 20180125
  43. GLYCEROL [Concomitant]
     Active Substance: GLYCERIN
     Dosage: CLYSTER
     Route: 065
     Dates: start: 20180125, end: 20180125
  44. DOPAMINE HYDROCHLORIDE. [Concomitant]
     Active Substance: DOPAMINE HYDROCHLORIDE
     Dosage: RISE BLOOD PRESSURE AND RESCUE
     Route: 065
     Dates: start: 20180125, end: 20180125
  45. SODIUM BICARBONATE. [Concomitant]
     Active Substance: SODIUM BICARBONATE
     Dosage: CORRECTION OF ACID EXCESS AND RESCUE
     Route: 042
     Dates: start: 20180125, end: 20180125
  46. COMPOUND AMINO ACID 18AA [Concomitant]
     Dosage: SUPPLEMENT ENERGY
     Route: 042
     Dates: start: 20180122, end: 20180125
  47. MEROPENEM. [Concomitant]
     Active Substance: MEROPENEM
     Indication: INFECTION
     Route: 042
     Dates: start: 20180125, end: 20180125
  48. ETOPOSIDE. [Suspect]
     Active Substance: ETOPOSIDE
     Indication: SMALL CELL LUNG CANCER EXTENSIVE STAGE
     Dosage: DATE OF MOST RECENT DOSE (146 MG, START TIME: 12:20 HR) PRIOR TO AE ONSET: 05/JAN/2018.?ON DAYS 1, 2
     Route: 042
     Dates: start: 20171211, end: 20180124
  49. MEGESTROL ACETATE. [Concomitant]
     Active Substance: MEGESTROL ACETATE
     Route: 048
     Dates: start: 20180102, end: 20180111
  50. MEGESTROL ACETATE. [Concomitant]
     Active Substance: MEGESTROL ACETATE
     Route: 048
     Dates: start: 20180122, end: 20180125
  51. TROPISETRON HYDROCHLORIDE [Concomitant]
     Active Substance: TROPISETRON HYDROCHLORIDE
     Route: 042
     Dates: start: 20171211, end: 20171213
  52. TROPISETRON HYDROCHLORIDE [Concomitant]
     Active Substance: TROPISETRON HYDROCHLORIDE
     Route: 048
     Dates: start: 20171214, end: 20171216
  53. SELENIOUS YEAST [Concomitant]
     Dosage: TO IMPROVE THE APPETITE
     Route: 048
     Dates: start: 20180122, end: 20180122
  54. ESOMEPRAZOLE SODIUM. [Concomitant]
     Active Substance: ESOMEPRAZOLE SODIUM
     Dosage: PROTECT THE STOMACH
     Route: 042
     Dates: start: 20180122, end: 20180125
  55. CREATINE PHOSPHATE SODIUM [Concomitant]
     Active Substance: CREATINE
     Route: 042
     Dates: start: 20180122, end: 20180125
  56. COMPOUND IPRATROPIUM BROMIDE [Concomitant]
     Indication: ASTHMA
     Route: 065
     Dates: start: 20180125, end: 20180125
  57. GLYCEROL [Concomitant]
     Active Substance: GLYCERIN
     Dosage: CLYSTER
     Route: 065
     Dates: start: 20180125, end: 20180125
  58. COMBIVENT [Concomitant]
     Active Substance: ALBUTEROL SULFATE\IPRATROPIUM BROMIDE
     Indication: ASTHMA
  59. METOCLOPRAMIDE. [Concomitant]
     Active Substance: METOCLOPRAMIDE
     Route: 048
     Dates: start: 20180105, end: 20180107
  60. SODIUM CHLORIDE. [Concomitant]
     Active Substance: SODIUM CHLORIDE
     Dosage: REPLENISH BLOOD VOLUME?COMPOUND SODIUM CHLORIDE
     Route: 042
     Dates: start: 20180125, end: 20180125
  61. COMPOUND IPRATROPIUM BROMIDE [Concomitant]
     Indication: MUSCLE SPASMS
     Route: 065
     Dates: start: 20180124, end: 20180124
  62. MAGNESIUM SULFATE. [Concomitant]
     Active Substance: MAGNESIUM SULFATE
     Dosage: CLYSTER
     Route: 065
     Dates: start: 20180125, end: 20180125
  63. TOPNEUTER [Concomitant]
     Indication: GRANULOCYTE COUNT INCREASED
     Route: 058
     Dates: start: 20180125, end: 20180125
  64. CARBOPLATIN. [Suspect]
     Active Substance: CARBOPLATIN
     Indication: SMALL CELL LUNG CANCER EXTENSIVE STAGE
     Dosage: DATE OF MOST RECENT DOSE (382 MG, START TIME: 14:10 HR) PRIOR TO AE ONSET: 03/JAN/2018.?TO ACHIEVE A
     Route: 042
     Dates: start: 20171211, end: 20180124
  65. SELENIOUS YEAST [Concomitant]
     Route: 048
     Dates: start: 20180105, end: 20180111
  66. OMEPRAZOLE SODIUM [Concomitant]
     Active Substance: OMEPRAZOLE SODIUM
     Route: 042
     Dates: start: 20180104, end: 20180105
  67. BROMHEXINE HYDROCHLORIDE [Concomitant]
     Active Substance: BROMHEXINE HYDROCHLORIDE
     Indication: PRODUCTIVE COUGH
     Route: 048
     Dates: start: 20171229, end: 20171231
  68. DROTAVERINE HYDROCHLORIDE [Concomitant]
     Active Substance: DROTAVERINE HYDROCHLORIDE
     Indication: ABDOMINAL PAIN
     Route: 048
     Dates: start: 20180101, end: 20180101
  69. ENTERAL NUTRITIONAL EMULSION (TPF) [Concomitant]
     Dosage: COMPENSATORY NUTRITION
     Route: 048
     Dates: start: 20180122, end: 20180125

REACTIONS (2)
  - Intestinal obstruction [Not Recovered/Not Resolved]
  - Pneumonitis [Fatal]

NARRATIVE: CASE EVENT DATE: 20180112
